FAERS Safety Report 9715949 (Version 1)
Quarter: 2013Q4

REPORT INFORMATION
  Report Type: Report from Study
  Country: GB (occurrence: GB)
  Receive Date: 20131127
  Receipt Date: 20131127
  Transmission Date: 20140711
  Serious: Yes (Hospitalization)
  Sender: FDA-Public Use
  Company Number: GB-JNJFOC-20131113233

PATIENT
  Age: 54 Year
  Sex: Female
  Weight: 101 kg

DRUGS (18)
  1. STELARA [Suspect]
     Indication: PSORIASIS
     Route: 058
     Dates: start: 20110805
  2. ISOSORBIDE MONONITRATE [Concomitant]
     Route: 065
     Dates: start: 20110501
  3. LANTUS [Concomitant]
     Route: 065
     Dates: start: 19880715
  4. HUMALOG [Concomitant]
     Route: 065
     Dates: start: 19880715
  5. TRAMADOL [Concomitant]
     Route: 065
     Dates: start: 20100715
  6. CO-CODAMOL [Concomitant]
     Route: 065
     Dates: start: 20100715
  7. AMITRIPTYLINE [Concomitant]
     Route: 065
     Dates: start: 20040715
  8. ASPIRIN [Concomitant]
     Route: 065
     Dates: start: 20040715
  9. ENALAPRIL [Concomitant]
     Route: 065
     Dates: start: 20040715
  10. NICORANDIL [Concomitant]
     Route: 065
     Dates: start: 20040715
  11. DILTIAZEM [Concomitant]
     Route: 065
     Dates: start: 20040715
  12. LANSOPRAZOLE [Concomitant]
     Route: 065
     Dates: start: 20040715
  13. RISPERIDONE [Concomitant]
     Route: 065
     Dates: start: 20040715
  14. LIRAGLUTIDE [Concomitant]
     Route: 065
     Dates: start: 20130715
  15. SIMVASTATIN [Concomitant]
     Route: 065
     Dates: start: 20120701
  16. NITROFURANTOIN [Concomitant]
     Route: 065
     Dates: start: 20130517, end: 20130525
  17. IVABRADINE [Concomitant]
     Route: 065
     Dates: start: 20130515
  18. COLECALCIFEROL [Concomitant]
     Route: 065
     Dates: start: 20130515

REACTIONS (1)
  - Urinary tract infection [Recovered/Resolved]
